FAERS Safety Report 10022329 (Version 3)
Quarter: 2014Q2

REPORT INFORMATION
  Report Type: Spontaneous
  Country: US (occurrence: US)
  Receive Date: 20140319
  Receipt Date: 20140415
  Transmission Date: 20141212
  Serious: Yes (Other)
  Sender: FDA-Public Use
  Company Number: US-BANPHARM-20142068

PATIENT
  Age: 70 Year
  Sex: Male
  Weight: 131.07 kg

DRUGS (7)
  1. NAPROXEN SODIUM 220 MG [Suspect]
     Indication: BACK PAIN
     Dosage: 1 DF, QD,
     Route: 048
     Dates: start: 20140116, end: 20140117
  2. DIURETICS [Concomitant]
  3. FLOMAX [Concomitant]
  4. NEXIUM [Concomitant]
  5. FINASTERIDE [Concomitant]
  6. LASIX [Concomitant]
  7. LOSARTAN [Concomitant]

REACTIONS (14)
  - Hypersensitivity [Recovered/Resolved]
  - Lymphoedema [Unknown]
  - Peripheral swelling [Recovering/Resolving]
  - Pain in extremity [Recovering/Resolving]
  - Somnolence [Recovered/Resolved]
  - Malaise [Recovered/Resolved]
  - Flushing [Recovered/Resolved]
  - Joint swelling [Recovering/Resolving]
  - Fatigue [Recovered/Resolved]
  - Pain [Recovered/Resolved]
  - Feeling abnormal [Unknown]
  - Blood pressure decreased [Unknown]
  - Shock [Unknown]
  - Loss of consciousness [Recovered/Resolved]
